FAERS Safety Report 13540208 (Version 8)
Quarter: 2019Q3

REPORT INFORMATION
  Report Type: Report from Study
  Country: CO (occurrence: CO)
  Receive Date: 20170512
  Receipt Date: 20190925
  Transmission Date: 20191004
  Serious: Yes (Life-Threatening, Hospitalization, Other)
  Sender: FDA-Public Use
  Company Number: PHHY2017CO067871

PATIENT
  Age: 18 Year
  Sex: Female
  Weight: 40 kg

DRUGS (6)
  1. HYDROXYUREA. [Concomitant]
     Active Substance: HYDROXYUREA
     Indication: PRODUCT USED FOR UNKNOWN INDICATION
     Dosage: 3 DF, QD
     Route: 065
  2. EXJADE [Suspect]
     Active Substance: DEFERASIROX
     Dosage: 500 MG, TID
     Route: 048
     Dates: start: 20170428
  3. ZINC SULFATE. [Concomitant]
     Active Substance: ZINC SULFATE
     Indication: PRODUCT USED FOR UNKNOWN INDICATION
     Dosage: UNK
     Route: 065
  4. JADENU [Suspect]
     Active Substance: DEFERASIROX
     Indication: THALASSAEMIA
     Dosage: 360 MG, QD
     Route: 048
     Dates: end: 201810
  5. EXJADE [Suspect]
     Active Substance: DEFERASIROX
     Indication: THALASSAEMIA
     Dosage: 500 MG, QD
     Route: 048
     Dates: start: 20131115
  6. FOLIC ACID. [Concomitant]
     Active Substance: FOLIC ACID
     Indication: PRODUCT USED FOR UNKNOWN INDICATION
     Dosage: UNK
     Route: 065

REACTIONS (20)
  - Ear infection [Unknown]
  - Gastritis [Unknown]
  - Joint injury [Unknown]
  - Hemiparesis [Unknown]
  - Bone marrow transplant rejection [Unknown]
  - Laryngitis [Unknown]
  - Vertigo [Unknown]
  - Haemoglobin decreased [Unknown]
  - Cardiovascular disorder [Unknown]
  - Rhinitis [Unknown]
  - Thalassaemia [Unknown]
  - Disease recurrence [Unknown]
  - Product use issue [Unknown]
  - Hydrocephalus [Unknown]
  - Hypotension [Not Recovered/Not Resolved]
  - Feeling abnormal [Unknown]
  - Dizziness [Unknown]
  - Amnesia [Unknown]
  - Disease progression [Unknown]
  - Incorrect dose administered [Unknown]

NARRATIVE: CASE EVENT DATE: 20170417
